FAERS Safety Report 8228989-3 (Version None)
Quarter: 2012Q1

REPORT INFORMATION
  Report Type: 
  Country: None (occurrence: None)
  Receive Date: 20120322
  Receipt Date: 20120319
  Transmission Date: 20120608
  Serious: Yes (Hospitalization)
  Sender: FDA-Public Use
  Company Number: NL-ROCHE-1028883

PATIENT
  Sex: Male
  Weight: 77 kg

DRUGS (8)
  1. KEPPRA [Concomitant]
     Indication: EPILEPSY
     Dosage: LAST DOSE PRIOR TO SAE: 05/FEB/2012
     Route: 048
  2. NEXIUM [Concomitant]
     Dates: start: 20120210
  3. LEVOTHYROXINE SODIUM [Concomitant]
     Indication: HYPOTHYROIDISM
     Dosage: LAST DOSE PRIOR TO SAE: 05/FEB/2012
     Route: 048
     Dates: start: 20110215, end: 20120210
  4. ACETAMINOPHEN [Concomitant]
     Indication: PAIN
     Dosage: LAST DOSE PRIOR TO SAE: 05/FEB/2012
     Route: 048
     Dates: end: 20120210
  5. LOMUSTINE [Suspect]
     Indication: BRAIN NEOPLASM MALIGNANT
     Dosage: LAST DOSE PRIOR TO SAE: 07/OCT/2011
     Route: 048
     Dates: start: 20110217
  6. AVASTIN [Suspect]
     Indication: BRAIN NEOPLASM MALIGNANT
     Dosage: LAST DOSE PRIOR TO SAE: 30/DEC/2011
     Route: 042
     Dates: start: 20110217
  7. DEPAKENE [Concomitant]
     Indication: EPILEPSY
     Dosage: LAST DOSE PRIOR TO SAE: 05/FEB/2012
     Route: 048
  8. FRISIUM [Concomitant]
     Indication: DEPRESSION
     Dates: start: 20110220, end: 20120210

REACTIONS (2)
  - PNEUMONIA [None]
  - SINUSITIS [None]
